FAERS Safety Report 23752287 (Version 1)
Quarter: 2024Q2

REPORT INFORMATION
  Report Type: Spontaneous
  Country: GB (occurrence: GB)
  Receive Date: 20240417
  Receipt Date: 20240417
  Transmission Date: 20240716
  Serious: Yes (Disabling)
  Sender: FDA-Public Use
  Company Number: None

PATIENT
  Age: 63 Year
  Sex: Female

DRUGS (2)
  1. BARICITINIB [Suspect]
     Active Substance: BARICITINIB
     Indication: Rheumatoid arthritis
     Dosage: UNK, UNKNOWN
     Route: 065
     Dates: end: 20230305
  2. BARICITINIB [Suspect]
     Active Substance: BARICITINIB
     Dosage: UNK, UNKNOWN
     Route: 065

REACTIONS (2)
  - Dry skin [Recovered/Resolved with Sequelae]
  - Eye swelling [Unknown]

NARRATIVE: CASE EVENT DATE: 20220912
